FAERS Safety Report 6843871-1 (Version None)
Quarter: 2010Q3

REPORT INFORMATION
  Report Type: 
  Country: None (occurrence: None)
  Receive Date: 20100715
  Receipt Date: 20100712
  Transmission Date: 20110219
  Serious: Yes (Death)
  Sender: FDA-Public Use
  Company Number: PHHY2010AR45250

PATIENT
  Sex: Male

DRUGS (1)
  1. STALEVO 100 [Suspect]
     Dosage: 50 MG, UNK

REACTIONS (2)
  - BRAIN NEOPLASM [None]
  - HAEMORRHAGIC STROKE [None]
